FAERS Safety Report 26150002 (Version 1)
Quarter: 2025Q4

REPORT INFORMATION
  Report Type: Spontaneous
  Country: EU (occurrence: EU)
  Receive Date: 20251212
  Receipt Date: 20251212
  Transmission Date: 20260118
  Serious: Yes (Other)
  Sender: REGENERON
  Company Number: EU-BAYER-2025A129050

PATIENT
  Sex: Female

DRUGS (1)
  1. EYLEA HD [Suspect]
     Active Substance: AFLIBERCEPT
     Indication: Neovascular age-related macular degeneration
     Dosage: UNK, 114.3 MG/ML

REACTIONS (4)
  - Intra-ocular injection complication [Unknown]
  - Headache [Unknown]
  - Intraocular pressure increased [Unknown]
  - Drug intolerance [Unknown]
